FAERS Safety Report 12071856 (Version 1)
Quarter: 2016Q1

REPORT INFORMATION
  Report Type: Report from Study
  Country: DE (occurrence: DE)
  Receive Date: 20160212
  Receipt Date: 20160212
  Transmission Date: 20160526
  Serious: Yes (Other)
  Sender: FDA-Public Use
  Company Number: DE-ROCHE-1708167

PATIENT
  Age: 56 Year
  Sex: Male
  Weight: 95 kg

DRUGS (12)
  1. RAMILICH [Concomitant]
     Active Substance: RAMIPRIL
     Route: 065
     Dates: start: 20100101
  2. COPEGUS [Suspect]
     Active Substance: RIBAVIRIN
     Indication: HEPATITIS C
     Route: 048
     Dates: start: 20130709, end: 20140621
  3. TELAPREVIR [Suspect]
     Active Substance: TELAPREVIR
     Indication: HEPATITIS C
     Route: 048
     Dates: start: 20130709, end: 20130928
  4. BISOPROLOL RATIOPHARM [Concomitant]
     Active Substance: BISOPROLOL
     Route: 065
     Dates: start: 20061101
  5. IBUPROFEN. [Concomitant]
     Active Substance: IBUPROFEN
     Route: 065
     Dates: start: 20130723
  6. CETIRIZIN [Concomitant]
     Active Substance: CETIRIZINE HYDROCHLORIDE
     Route: 065
     Dates: start: 20130820, end: 20130906
  7. PEG-INTERFERON ALFA 2A [Suspect]
     Active Substance: PEGINTERFERON ALFA-2A
     Indication: HEPATITIS C
     Route: 058
     Dates: start: 20130709, end: 20140621
  8. POSTERISAN FORTE [Concomitant]
     Active Substance: LIDOCAINE
  9. CITALOPRAM [Concomitant]
     Active Substance: CITALOPRAM HYDROBROMIDE
     Route: 065
     Dates: start: 20130709, end: 20140722
  10. PANTOPRAZOL [Concomitant]
     Active Substance: PANTOPRAZOLE SODIUM
     Indication: GASTRITIS
     Route: 065
     Dates: start: 20140304
  11. PANTOPRAZOL [Concomitant]
     Active Substance: PANTOPRAZOLE SODIUM
     Indication: ABDOMINAL DISCOMFORT
  12. PASPERTIN RETARD [Concomitant]
     Indication: DECREASED APPETITE
     Route: 065
     Dates: start: 20130723, end: 20131001

REACTIONS (13)
  - Fatigue [Recovered/Resolved]
  - Dysuria [Recovered/Resolved]
  - Headache [Recovered/Resolved]
  - Pruritus [Recovered/Resolved]
  - Disturbance in attention [Recovered/Resolved]
  - Haemorrhoidal haemorrhage [Recovered/Resolved]
  - Dysgeusia [Recovered/Resolved]
  - Nausea [Not Recovered/Not Resolved]
  - Decreased appetite [Recovering/Resolving]
  - Dyspnoea exertional [Not Recovered/Not Resolved]
  - Gastritis [Not Recovered/Not Resolved]
  - Abdominal discomfort [Not Recovered/Not Resolved]
  - Dry skin [Recovered/Resolved]

NARRATIVE: CASE EVENT DATE: 20130716
